FAERS Safety Report 8446075-4 (Version None)
Quarter: 2012Q2

REPORT INFORMATION
  Report Type: 
  Country: None (occurrence: None)
  Receive Date: 20120618
  Receipt Date: 20120612
  Transmission Date: 20120825
  Serious: Yes (Disabling)
  Sender: FDA-Public Use
  Company Number: NL-PFIZER INC-2012142023

PATIENT
  Age: 55 Year
  Sex: Female
  Weight: 103 kg

DRUGS (9)
  1. SIMVASTATIN [Suspect]
     Indication: HYPERCHOLESTEROLAEMIA
     Dosage: 40 MG, 1X/DAY
     Dates: start: 20051223, end: 20060314
  2. COVERSYL PLUS [Concomitant]
  3. LIPITOR [Suspect]
     Indication: HYPERCHOLESTEROLAEMIA
     Dosage: 40 MG, 1X/DAY
     Dates: start: 20030525, end: 20040314
  4. PRAVASTATIN [Suspect]
     Indication: HYPERCHOLESTEROLAEMIA
     Dosage: 1 DF, 1X/DAY
  5. GEMFIBROZIL [Concomitant]
  6. ACENOCOUMAROL [Concomitant]
  7. NEDIOS [Concomitant]
     Dosage: UNK
     Dates: start: 20070618, end: 20070823
  8. NIASPAN [Concomitant]
  9. MONO-CEDOCARD RETARD [Concomitant]

REACTIONS (2)
  - WEIGHT INCREASED [None]
  - BACK PAIN [None]
